FAERS Safety Report 12331197 (Version 1)
Quarter: 2016Q2

REPORT INFORMATION
  Report Type: Spontaneous
  Country: US (occurrence: None)
  Receive Date: 20160503
  Receipt Date: 20160503
  Transmission Date: 20160815
  Serious: Yes (Life-Threatening, Hospitalization)
  Sender: FDA-Public Use
  Company Number: None

PATIENT
  Age: 67 Year
  Sex: Male
  Weight: 74.6 kg

DRUGS (2)
  1. WARFARIN [Suspect]
     Active Substance: WARFARIN
     Indication: MITRAL VALVE DISEASE
     Route: 048
     Dates: start: 20120301
  2. WARFARIN [Suspect]
     Active Substance: WARFARIN
     Indication: ATRIAL FIBRILLATION
     Route: 048
     Dates: start: 20120301

REACTIONS (3)
  - Anaemia [None]
  - Gastrointestinal haemorrhage [None]
  - Faeces discoloured [None]

NARRATIVE: CASE EVENT DATE: 20160308
